FAERS Safety Report 25353575 (Version 1)
Quarter: 2025Q2

REPORT INFORMATION
  Report Type: Spontaneous
  Country: US (occurrence: US)
  Receive Date: 20250523
  Receipt Date: 20250523
  Transmission Date: 20250717
  Serious: No
  Sender: ARCUTIS
  Company Number: US-ARCUTIS BIOTHERAPEUTICS INC-2025AER000112

PATIENT

DRUGS (14)
  1. ZORYVE [Suspect]
     Active Substance: ROFLUMILAST
     Indication: Fibrosis
     Dosage: UNK UNK, QD
     Route: 061
     Dates: start: 202502, end: 202502
  2. ZORYVE [Suspect]
     Active Substance: ROFLUMILAST
     Indication: Lichen planopilaris
  3. ZORYVE [Suspect]
     Active Substance: ROFLUMILAST
     Indication: Papule
  4. ZORYVE [Suspect]
     Active Substance: ROFLUMILAST
     Indication: Dermatitis
  5. ZORYVE [Suspect]
     Active Substance: ROFLUMILAST
     Indication: Pruritus
  6. LOSARTAN [Concomitant]
     Active Substance: LOSARTAN
     Indication: Product used for unknown indication
  7. AMLODIPINE [Concomitant]
     Active Substance: AMLODIPINE BESYLATE
     Indication: Product used for unknown indication
  8. ROSUVASTATIN [Concomitant]
     Active Substance: ROSUVASTATIN
     Indication: Product used for unknown indication
  9. ELIQUIS [Concomitant]
     Active Substance: APIXABAN
     Indication: Product used for unknown indication
  10. ASPIRIN [Concomitant]
     Active Substance: ASPIRIN
     Indication: Product used for unknown indication
  11. BUPROPION [Concomitant]
     Active Substance: BUPROPION
     Indication: Product used for unknown indication
  12. FLONASE [Concomitant]
     Active Substance: FLUTICASONE PROPIONATE
     Indication: Product used for unknown indication
  13. PRAZOSIN [Concomitant]
     Active Substance: PRAZOSIN
     Indication: Product used for unknown indication
  14. MULTIVITAMIN IRON [Concomitant]
     Indication: Product used for unknown indication

REACTIONS (7)
  - Palpitations [Unknown]
  - Heart rate increased [Unknown]
  - Blood pressure increased [Unknown]
  - Panic attack [Unknown]
  - Abnormal dreams [Unknown]
  - Feeling abnormal [Unknown]
  - Off label use [Unknown]

NARRATIVE: CASE EVENT DATE: 20250201
